FAERS Safety Report 22265277 (Version 2)
Quarter: 2023Q4

REPORT INFORMATION
  Report Type: Report from Study
  Country: JP (occurrence: JP)
  Receive Date: 20230428
  Receipt Date: 20231027
  Transmission Date: 20240110
  Serious: Yes (Hospitalization)
  Sender: FDA-Public Use
  Company Number: JP-JNJFOC-20230441648

PATIENT
  Age: 66 Year
  Sex: Male
  Weight: 77.7 kg

DRUGS (24)
  1. DARATUMUMAB [Suspect]
     Active Substance: DARATUMUMAB
     Indication: Plasma cell myeloma
     Dosage: CYCLE 1 DAY 1
     Route: 058
     Dates: start: 20230314, end: 20230314
  2. DARATUMUMAB [Suspect]
     Active Substance: DARATUMUMAB
     Dosage: CYCLE1 DAY8
     Route: 058
     Dates: start: 20230322, end: 20230322
  3. DARATUMUMAB [Suspect]
     Active Substance: DARATUMUMAB
     Dosage: CYCLE1 DAY22
     Route: 058
     Dates: start: 20230404, end: 20230404
  4. DARATUMUMAB [Suspect]
     Active Substance: DARATUMUMAB
     Dosage: CYCLE2 DAY1
     Route: 058
     Dates: start: 20230411, end: 20230411
  5. TALQUETAMAB [Suspect]
     Active Substance: TALQUETAMAB
     Indication: Plasma cell myeloma
     Dosage: CYCLE1  DAY2 INITIAL
     Route: 058
     Dates: start: 20230315, end: 20230315
  6. TALQUETAMAB [Suspect]
     Active Substance: TALQUETAMAB
     Dosage: CYCLE1 DAY4 SECOND STEP-UP
     Route: 058
     Dates: start: 20230317, end: 20230317
  7. TALQUETAMAB [Suspect]
     Active Substance: TALQUETAMAB
     Dosage: CYCLE1 DAY 8 THIRD STEP UP
     Route: 058
     Dates: start: 20230322, end: 20230322
  8. TALQUETAMAB [Suspect]
     Active Substance: TALQUETAMAB
     Dosage: CYCLE1 DAY 15 TARGET DOSE
     Route: 058
     Dates: start: 20230328, end: 20230328
  9. TALQUETAMAB [Suspect]
     Active Substance: TALQUETAMAB
     Dosage: CYCLE 2
     Route: 058
     Dates: start: 20230411, end: 20230411
  10. POMALIDOMIDE [Suspect]
     Active Substance: POMALIDOMIDE
     Indication: Plasma cell myeloma
     Dosage: C3 AND AFTER THAT D1 TO D21
     Route: 048
     Dates: start: 20230411, end: 20230415
  11. DEXAMETHASONE [Suspect]
     Active Substance: DEXAMETHASONE
     Indication: Plasma cell myeloma
     Dosage: D1,8,15,22
     Route: 048
     Dates: start: 20230411, end: 20230411
  12. ACYCLOVIR [Concomitant]
     Active Substance: ACYCLOVIR
     Indication: Herpes virus infection
     Route: 048
     Dates: start: 20200314
  13. SULFAMETHOXAZOLE\TRIMETHOPRIM [Concomitant]
     Active Substance: SULFAMETHOXAZOLE\TRIMETHOPRIM
     Indication: Pneumocystis jirovecii pneumonia
     Route: 048
     Dates: start: 20230314
  14. ASPIRIN [Concomitant]
     Active Substance: ASPIRIN
     Indication: Thrombosis prophylaxis
     Route: 048
     Dates: start: 20230314
  15. RABEPRAZOLE SODIUM [Concomitant]
     Active Substance: RABEPRAZOLE SODIUM
     Indication: Prophylaxis against gastrointestinal ulcer
     Route: 048
     Dates: start: 20230314
  16. AMLODIPINE BESYLATE\IRBESARTAN [Concomitant]
     Active Substance: AMLODIPINE BESYLATE\IRBESARTAN
     Indication: Hypertension
     Route: 048
     Dates: start: 20230706, end: 20230706
  17. PETROLATUM [Concomitant]
     Active Substance: PETROLATUM
     Indication: Dry skin
     Route: 061
     Dates: start: 20230403, end: 20230601
  18. RESTAMINE [Concomitant]
     Indication: Pruritus
     Route: 062
     Dates: start: 20230403, end: 20230706
  19. CLOBETASOL [Concomitant]
     Active Substance: CLOBETASOL
     Indication: Palmar-plantar erythrodysaesthesia syndrome
     Route: 062
     Dates: start: 20230410, end: 20230511
  20. ZINC OXIDE [Concomitant]
     Active Substance: ZINC OXIDE
     Indication: Palmar-plantar erythrodysaesthesia syndrome
     Route: 062
     Dates: start: 20230410, end: 20230511
  21. IRBESARTAN;S AMLODIPINE NICOTINATE [Concomitant]
     Indication: Hypertension
     Route: 048
  22. KERATINAMIN KOWA [UREA] [Concomitant]
     Indication: Palmar-plantar erythrodysaesthesia syndrome
     Route: 062
     Dates: start: 20230410, end: 20230511
  23. CALCIUM CARBONATE\CHOLECALCIFEROL\MAGNESIUM CARBONATE [Concomitant]
     Active Substance: CALCIUM CARBONATE\CHOLECALCIFEROL\MAGNESIUM CARBONATE
     Indication: Prophylaxis
     Route: 048
     Dates: start: 20230411
  24. DENOSUMAB [Concomitant]
     Active Substance: DENOSUMAB
     Indication: Bone lesion
     Route: 058
     Dates: start: 20230411

REACTIONS (1)
  - Cytokine release syndrome [Recovered/Resolved]

NARRATIVE: CASE EVENT DATE: 20230415
